FAERS Safety Report 9230466 (Version 1)
Quarter: 2013Q1

REPORT INFORMATION
  Report Type: Spontaneous
  Country: US (occurrence: None)
  Receive Date: 20121019
  Receipt Date: 20121019
  Transmission Date: 20140127
  Serious: No
  Sender: FDA-Public Use
  Company Number: 2012P1003164

PATIENT
  Age: 67 Year
  Sex: Male
  Weight: 63.5 kg

DRUGS (4)
  1. FENTANYL [Suspect]
     Indication: BACK PAIN
     Dosage: Q72H; TDER
     Dates: start: 2010
  2. UROXAL [Concomitant]
  3. PROSATE MEDS [Concomitant]
  4. WARFARIN [Concomitant]

REACTIONS (2)
  - Somnolence [None]
  - Insomnia [None]
